FAERS Safety Report 26139760 (Version 1)
Quarter: 2025Q4

REPORT INFORMATION
  Report Type: Spontaneous
  Country: US (occurrence: None)
  Receive Date: 20251208
  Receipt Date: 20251208
  Transmission Date: 20260118
  Serious: Yes (Other)
  Sender: FDA-CTU
  Company Number: None

PATIENT
  Age: 11 Year
  Sex: Male
  Weight: 505.76 kg

DRUGS (1)
  1. OSELTAMIVIR PHOSPHATE [Suspect]
     Active Substance: OSELTAMIVIR PHOSPHATE
     Indication: Influenza
     Dosage: FREQUENCY : DAILY;
     Dates: start: 20251206, end: 20251207

REACTIONS (4)
  - Confusional state [None]
  - Hallucination [None]
  - Speech disorder [None]
  - Product communication issue [None]

NARRATIVE: CASE EVENT DATE: 20251207
